FAERS Safety Report 7931999-4 (Version None)
Quarter: 2011Q4

REPORT INFORMATION
  Report Type: 
  Country: None (occurrence: None)
  Receive Date: 20111121
  Receipt Date: 20111114
  Transmission Date: 20120403
  Serious: Yes (Hospitalization)
  Sender: FDA-Public Use
  Company Number: US-TEVA-309300USA

PATIENT

DRUGS (1)
  1. METHYLDOPA [Suspect]

REACTIONS (3)
  - DYSSTASIA [None]
  - SOMNOLENCE [None]
  - DRUG DISPENSING ERROR [None]
